FAERS Safety Report 4927395-4 (Version None)
Quarter: 2006Q1

REPORT INFORMATION
  Report Type: 
  Country: None (occurrence: None)
  Receive Date: 20060228
  Receipt Date: 20051107
  Transmission Date: 20060701
  Serious: No
  Sender: FDA-Public Use
  Company Number: US-GLAXOSMITHKLINE-A0581251A

PATIENT
  Age: 48 Year
  Sex: Female

DRUGS (8)
  1. IMITREX [Suspect]
     Indication: MIGRAINE
     Dosage: 6MG PER DAY
     Route: 058
  2. KADIAN [Concomitant]
  3. ALPRAZOLAM [Concomitant]
  4. CYMBALTA [Concomitant]
  5. PRILOSEC [Concomitant]
  6. ADVAIR DISKUS 100/50 [Concomitant]
  7. FLONASE [Concomitant]
  8. MYLANTIN [Concomitant]

REACTIONS (1)
  - INJECTION SITE SWELLING [None]
